FAERS Safety Report 5370245-5 (Version None)
Quarter: 2007Q2

REPORT INFORMATION
  Report Type: 
  Country: None (occurrence: None)
  Receive Date: 20070626
  Receipt Date: 20070615
  Transmission Date: 20071010
  Serious: Yes (Hospitalization)
  Sender: FDA-Public Use
  Company Number: MA-ASTRAZENECA-2007CG00662

PATIENT
  Age: 50 Year
  Sex: Male

DRUGS (6)
  1. DIPRIVAN [Suspect]
     Indication: INDUCTION OF ANAESTHESIA
     Route: 042
     Dates: start: 20070418, end: 20070418
  2. ESMERON [Concomitant]
     Dates: start: 20070418, end: 20070418
  3. FENTANYL [Concomitant]
     Dates: start: 20070418, end: 20070418
  4. AUGMENTIN '125' [Concomitant]
     Dates: start: 20070418, end: 20070418
  5. DAFALGAN [Concomitant]
     Dates: start: 20070418, end: 20070418
  6. ISOFLURANE [Concomitant]
     Dates: start: 20070418, end: 20070418

REACTIONS (2)
  - CHILLS [None]
  - HYPERTHERMIA [None]
